FAERS Safety Report 5101182-9 (Version None)
Quarter: 2006Q3

REPORT INFORMATION
  Report Type: 
  Country: None (occurrence: None)
  Receive Date: 20060911
  Receipt Date: 20060227
  Transmission Date: 20061208
  Serious: Yes (Other)
  Sender: FDA-Public Use
  Company Number: US-AVENTIS-200611876US

PATIENT
  Sex: Female
  Weight: 86 kg

DRUGS (11)
  1. LANTUS [Suspect]
     Indication: DIABETES MELLITUS NON-INSULIN-DEPENDENT
     Dates: start: 20050101
  2. OPTICLIK (INSULIN INJECTION PEN) [Suspect]
  3. PREDNISONE TAB [Suspect]
     Dosage: DOSE: UNK
     Dates: start: 19930101, end: 20050801
  4. NOVOLIN R [Concomitant]
     Dosage: DOSE: UNK
  5. CELLCEPT [Concomitant]
     Dosage: DOSE: UNK
  6. RAPAMUNE [Concomitant]
     Dosage: DOSE: UNK
  7. DIOVAN [Concomitant]
     Dosage: DOSE: UNK
  8. ASPIRIN [Concomitant]
     Dosage: DOSE: UNK
  9. EVISTA [Concomitant]
     Dosage: DOSE: UNK
  10. FOSAMAX [Concomitant]
     Dosage: DOSE: UNK
  11. PLAVIX [Concomitant]
     Dosage: DOSE: UNK

REACTIONS (3)
  - CORNEAL TRANSPLANT [None]
  - INJECTION SITE HAEMORRHAGE [None]
  - ULCERATIVE KERATITIS [None]
